FAERS Safety Report 7579981-3 (Version None)
Quarter: 2011Q2

REPORT INFORMATION
  Report Type: 
  Country: None (occurrence: None)
  Receive Date: 20110629
  Receipt Date: 20110624
  Transmission Date: 20111010
  Serious: Yes (Other)
  Sender: FDA-Public Use
  Company Number: US-JNJFOC-20110609630

PATIENT
  Sex: Male
  Weight: 122.93 kg

DRUGS (2)
  1. USTEKINUMAB [Suspect]
     Indication: PSORIASIS
     Route: 058
     Dates: start: 20100701
  2. USTEKINUMAB [Suspect]
     Route: 058
     Dates: start: 20110509

REACTIONS (1)
  - EPITHELIOID SARCOMA [None]
